FAERS Safety Report 20672189 (Version 2)
Quarter: 2022Q2

REPORT INFORMATION
  Report Type: Spontaneous
  Country: ES (occurrence: ES)
  Receive Date: 20220405
  Receipt Date: 20220411
  Transmission Date: 20220721
  Serious: Yes (Other)
  Sender: FDA-Public Use
  Company Number: ES-UCBSA-2022018787

PATIENT
  Sex: Male

DRUGS (1)
  1. BRIVIACT [Suspect]
     Active Substance: BRIVARACETAM
     Indication: Epilepsy
     Dosage: UNK, 2X/DAY (BID) (250MG PER DAY)

REACTIONS (3)
  - Hepatic failure [Not Recovered/Not Resolved]
  - Overdose [Unknown]
  - Off label use [Unknown]
